FAERS Safety Report 23148852 (Version 1)
Quarter: 2023Q4

REPORT INFORMATION
  Report Type: Spontaneous
  Country: PL (occurrence: PL)
  Receive Date: 20231106
  Receipt Date: 20231106
  Transmission Date: 20240109
  Serious: Yes (Other)
  Sender: FDA-Public Use
  Company Number: None

PATIENT
  Age: 70 Year
  Sex: Female
  Weight: 91 kg

DRUGS (2)
  1. METHOTREXATE [Suspect]
     Active Substance: METHOTREXATE
     Indication: Rheumatoid arthritis
     Dates: start: 20170627, end: 20180619
  2. METHOTREXATE [Suspect]
     Active Substance: METHOTREXATE
     Dosage: FROM 15MG/WEEK TO 25MG/WEEK
     Dates: start: 20160520, end: 20180619

REACTIONS (1)
  - Interstitial lung abnormality [Unknown]

NARRATIVE: CASE EVENT DATE: 20180517
